FAERS Safety Report 9148299 (Version 1)
Quarter: 2013Q1

REPORT INFORMATION
  Report Type: Spontaneous
  Country: US (occurrence: US)
  Receive Date: 20130308
  Receipt Date: 20130308
  Transmission Date: 20140127
  Serious: No
  Sender: FDA-Public Use
  Company Number: US-009507513-1303USA003517

PATIENT
  Sex: Female
  Weight: 66.21 kg

DRUGS (11)
  1. VICTRELIS [Suspect]
     Dosage: 800 MG (4 CAPS)
     Route: 048
  2. PEGASYS [Suspect]
     Dosage: 180 MCG/M
  3. RIBAPAK [Suspect]
     Dosage: 1000 PER DAY
  4. EFFEXOR [Concomitant]
     Dosage: UNK
  5. ZYRTEC [Concomitant]
  6. LISINOPRIL [Concomitant]
  7. METOPROLOL [Concomitant]
  8. NEXIUM [Concomitant]
  9. ACETAMINOPHEN (+) HYDROCODONE BITARTRATE [Concomitant]
     Dosage: 10-660 MG
  10. ALEVE [Concomitant]
  11. VITAMINS (UNSPECIFIED) [Concomitant]

REACTIONS (6)
  - Weight decreased [Unknown]
  - Dysgeusia [Unknown]
  - Flatulence [Unknown]
  - Eructation [Unknown]
  - Abdominal distension [Unknown]
  - Vomiting [Unknown]
